FAERS Safety Report 5132886-X (Version None)
Quarter: 2006Q4

REPORT INFORMATION
  Report Type: 
  Country: None (occurrence: None)
  Receive Date: 20061019
  Receipt Date: 20061019
  Transmission Date: 20070319
  Serious: Yes (Death)
  Sender: FDA-Public Use
  Company Number: None

PATIENT
  Age: 64 Year
  Sex: Female
  Weight: 70.3075 kg

DRUGS (1)
  1. TAXOL [Suspect]
     Indication: METASTATIC NEOPLASM
     Dates: start: 20060803

REACTIONS (4)
  - ABDOMINAL PAIN [None]
  - CYANOSIS [None]
  - DRUG HYPERSENSITIVITY [None]
  - INFUSION RELATED REACTION [None]
